FAERS Safety Report 6067318-0 (Version None)
Quarter: 2009Q1

REPORT INFORMATION
  Report Type: 
  Country: None (occurrence: None)
  Receive Date: 20090203
  Receipt Date: 20090123
  Transmission Date: 20090719
  Serious: Yes (Hospitalization)
  Sender: FDA-Public Use
  Company Number: 040210

PATIENT
  Age: 54 Year
  Sex: Female

DRUGS (2)
  1. LITHIUM CARBONATE [Suspect]
  2. COPAXONE [Suspect]
     Indication: MULTIPLE SCLEROSIS
     Dosage: 20 MG, SUBCUTANEOUS
     Route: 058
     Dates: start: 20081029

REACTIONS (5)
  - CATATONIA [None]
  - NAUSEA [None]
  - THERAPEUTIC AGENT TOXICITY [None]
  - TREMOR [None]
  - VOMITING [None]
